FAERS Safety Report 4447876-X (Version None)
Quarter: 2004Q3

REPORT INFORMATION
  Report Type: 
  Country: None (occurrence: None)
  Receive Date: 20040910
  Receipt Date: 20040830
  Transmission Date: 20050211
  Serious: Yes (Hospitalization)
  Sender: FDA-Public Use
  Company Number: 2004UW05301

PATIENT
  Age: 66 Year
  Sex: Female

DRUGS (15)
  1. CRESTOR [Suspect]
     Dosage: 10 MG QD PO
     Route: 048
     Dates: start: 20030917, end: 20040107
  2. ULTRAM [Suspect]
     Dosage: 50 MG QID
  3. AVANDIA [Suspect]
     Dosage: 8 MG QD
  4. VIOXX [Concomitant]
  5. XALATAN [Concomitant]
  6. NEXIUM [Concomitant]
  7. MECLIZINE [Concomitant]
  8. ADVIL [Concomitant]
  9. CARMOL [Concomitant]
  10. ASPIRIN [Concomitant]
  11. 32ATACAND [Concomitant]
  12. NEURONTIN [Concomitant]
  13. GLUCOVANCE [Concomitant]
  14. NAPROXEN [Concomitant]
  15. TEARS NATURALE [Concomitant]

REACTIONS (10)
  - ANTIMITOCHONDRIAL ANTIBODY POSITIVE [None]
  - AUTOIMMUNE HEPATITIS [None]
  - BACK PAIN [None]
  - BLOOD ALBUMIN DECREASED [None]
  - BLOOD IMMUNOGLOBULIN G INCREASED [None]
  - DIZZINESS [None]
  - FATIGUE [None]
  - FEMALE GENITAL-DIGESTIVE TRACT FISTULA [None]
  - SEPSIS [None]
  - URINARY TRACT INFECTION [None]
